FAERS Safety Report 25655106 (Version 3)
Quarter: 2025Q3

REPORT INFORMATION
  Report Type: Spontaneous
  Country: CN (occurrence: CN)
  Receive Date: 20250807
  Receipt Date: 20250901
  Transmission Date: 20251020
  Serious: Yes (Hospitalization)
  Sender: ACCORD
  Company Number: CN-Accord-497616

PATIENT
  Age: 34 Year
  Sex: Female
  Weight: 49.1 kg

DRUGS (12)
  1. MYCOPHENOLIC ACID [Suspect]
     Active Substance: MYCOPHENOLIC ACID
     Indication: Immunosuppressant drug therapy
     Dosage: ENTERIC- COATED
     Route: 048
     Dates: start: 2023
  2. TACROLIMUS [Suspect]
     Active Substance: TACROLIMUS
     Indication: Immunosuppressant drug therapy
     Route: 048
     Dates: start: 2023, end: 2023
  3. PREDNISONE [Suspect]
     Active Substance: PREDNISONE
     Indication: Immunosuppressant drug therapy
     Route: 048
     Dates: start: 2023
  4. TACROLIMUS [Suspect]
     Active Substance: TACROLIMUS
     Indication: Immunosuppressant drug therapy
     Dosage: SUSTAINED-RELEASE CAPSULES
     Route: 048
     Dates: start: 20230713, end: 202307
  5. TACROLIMUS [Suspect]
     Active Substance: TACROLIMUS
     Indication: Immunosuppressant drug therapy
     Dosage: TAC WEIGHT-NORMALIZED (WN) DAILY DOSE: 0.10 MG/KG/DAY
     Route: 048
     Dates: start: 20230710, end: 202307
  6. TACROLIMUS [Suspect]
     Active Substance: TACROLIMUS
     Indication: Immunosuppressant drug therapy
     Dosage: TAC WEIGHT-NORMALIZED (WN) DAILY DOSE: 0.11 MG/KG/DAY
     Route: 048
     Dates: start: 20230720, end: 202307
  7. TACROLIMUS [Suspect]
     Active Substance: TACROLIMUS
     Indication: Immunosuppressant drug therapy
     Dosage: TAC WEIGHT-NORMALIZED (WN) DAILY DOSE: 0.12 MG/KG/DAY
     Route: 048
     Dates: start: 20230727, end: 2023
  8. TACROLIMUS [Suspect]
     Active Substance: TACROLIMUS
     Indication: Immunosuppressant drug therapy
     Dosage: TAC WEIGHT-NORMALIZED (WN) DAILY DOSE: 0.13 MG/KG/DAY
     Route: 048
     Dates: start: 20230727, end: 202308
  9. PREDNISONE [Suspect]
     Active Substance: PREDNISONE
     Indication: Immunosuppressant drug therapy
     Route: 048
     Dates: start: 20230713
  10. MYCOPHENOLIC ACID [Suspect]
     Active Substance: MYCOPHENOLIC ACID
     Indication: Immunosuppressant drug therapy
     Dosage: ENTERIC- COATED
     Route: 048
     Dates: start: 20230713, end: 202307
  11. MYCOPHENOLIC ACID [Suspect]
     Active Substance: MYCOPHENOLIC ACID
     Indication: Immunosuppressant drug therapy
     Dosage: ENTERIC- COATED
     Route: 048
     Dates: start: 20230727, end: 2023
  12. MYCOPHENOLIC ACID [Suspect]
     Active Substance: MYCOPHENOLIC ACID
     Indication: Immunosuppressant drug therapy
     Dosage: ENTERIC- COATED
     Route: 048
     Dates: start: 20230803

REACTIONS (3)
  - Pericoronitis [Recovered/Resolved]
  - Diarrhoea [Recovered/Resolved]
  - Tooth impacted [Recovered/Resolved]

NARRATIVE: CASE EVENT DATE: 20230727
